FAERS Safety Report 10917481 (Version 2)
Quarter: 2015Q2

REPORT INFORMATION
  Report Type: Spontaneous
  Country: US (occurrence: US)
  Receive Date: 20150316
  Receipt Date: 20150407
  Transmission Date: 20150821
  Serious: Yes (Other)
  Sender: FDA-Public Use
  Company Number: US-SA-2015SA026133

PATIENT
  Age: 59 Year
  Sex: Female

DRUGS (2)
  1. NASACORT ALLERGY 24HR [Suspect]
     Active Substance: TRIAMCINOLONE ACETONIDE
     Indication: SINUS DISORDER
     Dosage: DOSAGE: 55 MCG?FREQUENCY: 2 SPRAYS/ NOSTRIL
     Route: 045
     Dates: start: 1994
  2. NASACORT ALLERGY 24HR [Suspect]
     Active Substance: TRIAMCINOLONE ACETONIDE
     Indication: MULTIPLE ALLERGIES
     Dosage: DOSAGE: 55 MCG?FREQUENCY: 2 SPRAYS/ NOSTRIL
     Route: 045
     Dates: start: 1994

REACTIONS (2)
  - Drug ineffective [Unknown]
  - Drug dependence [Unknown]
